FAERS Safety Report 22122525 (Version 1)
Quarter: 2023Q1

REPORT INFORMATION
  Report Type: Spontaneous
  Country: RU (occurrence: RU)
  Receive Date: 20230321
  Receipt Date: 20230321
  Transmission Date: 20230417
  Serious: Yes (Other)
  Sender: FDA-Public Use
  Company Number: RU-009507513-2303RUS005486

PATIENT
  Age: 3 Year
  Sex: Male
  Weight: 11 kg

DRUGS (1)
  1. INVANZ [Suspect]
     Active Substance: ERTAPENEM SODIUM
     Indication: Antibiotic prophylaxis
     Dosage: 150 MILLIGRAM, 1 TIME PER DAY
     Dates: start: 20230312, end: 20230313

REACTIONS (1)
  - Apnoea [Recovered/Resolved]

NARRATIVE: CASE EVENT DATE: 20230313
